FAERS Safety Report 8076078-3 (Version None)
Quarter: 2012Q1

REPORT INFORMATION
  Report Type: 
  Country: None (occurrence: None)
  Receive Date: 20120127
  Receipt Date: 20110722
  Transmission Date: 20120608
  Serious: No
  Sender: FDA-Public Use
  Company Number: US-GLAXOSMITHKLINE-A0938933A

PATIENT
  Age: 47 Year
  Sex: Male

DRUGS (4)
  1. DESIPRAMINE HCL [Concomitant]
     Dates: start: 20110601
  2. ADDERALL 5 [Concomitant]
     Dates: start: 20110701
  3. WELLBUTRIN XL [Suspect]
     Indication: DEPRESSION
     Dosage: 150MG PER DAY
     Route: 048
     Dates: start: 20010101
  4. KLONOPIN [Concomitant]

REACTIONS (8)
  - DEPRESSION [None]
  - FATIGUE [None]
  - DRUG INEFFECTIVE [None]
  - PRODUCT QUALITY ISSUE [None]
  - CONSTIPATION [None]
  - ANXIETY [None]
  - MALAISE [None]
  - TERMINAL INSOMNIA [None]
